FAERS Safety Report 10486158 (Version 1)
Quarter: 2014Q3

REPORT INFORMATION
  Report Type: Spontaneous
  Country: US (occurrence: None)
  Receive Date: 20140908
  Receipt Date: 20140908
  Transmission Date: 20150326
  Serious: Yes (Other)
  Sender: FDA-Public Use
  Company Number: 410068

PATIENT
  Age: 54 Year
  Sex: Female
  Weight: 81.2 kg

DRUGS (7)
  1. BYDUREON [Suspect]
     Active Substance: EXENATIDE
     Indication: TYPE 2 DIABETES MELLITUS
     Dates: start: 201401, end: 20140312
  2. ARMOUR THYROID (THYROID) [Concomitant]
  3. GLIPIZIDE (GLIPIZIDE) [Concomitant]
     Active Substance: GLIPIZIDE
  4. ESTRADIOL (ESTRADIOL) (GEL) [Concomitant]
     Active Substance: ESTRADIOL
  5. PROGESTERONE (PROGESTERONE) [Concomitant]
  6. TESTOSTERONE (TESTOSTERONE) [Concomitant]
  7. VICTOZA [Suspect]
     Active Substance: LIRAGLUTIDE
     Indication: TYPE 2 DIABETES MELLITUS
     Route: 058
     Dates: start: 20130430, end: 201401

REACTIONS (1)
  - Pancreatitis [None]

NARRATIVE: CASE EVENT DATE: 20140505
